FAERS Safety Report 6144415-2 (Version None)
Quarter: 2009Q2

REPORT INFORMATION
  Report Type: 
  Country: None (occurrence: None)
  Receive Date: 20090406
  Receipt Date: 20090326
  Transmission Date: 20091009
  Serious: Yes (Other)
  Sender: FDA-Public Use
  Company Number: NO-JNJFOC-20090307271

PATIENT

DRUGS (1)
  1. REMICADE [Suspect]
     Indication: SKIN DISORDER
     Route: 042

REACTIONS (1)
  - MYOPATHY [None]
